FAERS Safety Report 6215560-8 (Version None)
Quarter: 2009Q2

REPORT INFORMATION
  Report Type: 
  Country: None (occurrence: None)
  Receive Date: 20090605
  Receipt Date: 20090601
  Transmission Date: 20091009
  Serious: Yes (Hospitalization, Disabling)
  Sender: FDA-Public Use
  Company Number: FR-BRISTOL-MYERS SQUIBB COMPANY-14645188

PATIENT
  Age: 43 Year
  Sex: Male

DRUGS (3)
  1. REYATAZ [Suspect]
     Indication: HIV INFECTION
     Dates: start: 20070907, end: 20080901
  2. TRUVADA [Suspect]
     Indication: HIV INFECTION
     Dates: start: 20070907, end: 20080901
  3. NORVIR [Suspect]
     Indication: HIV INFECTION
     Dates: start: 20070907, end: 20080901

REACTIONS (3)
  - FANCONI SYNDROME [None]
  - RENAL FAILURE [None]
  - SPINAL COMPRESSION FRACTURE [None]
